FAERS Safety Report 21133866 (Version 2)
Quarter: 2022Q3

REPORT INFORMATION
  Report Type: Report from Study
  Country: IT (occurrence: IT)
  Receive Date: 20220726
  Receipt Date: 20220729
  Transmission Date: 20221027
  Serious: Yes (Other)
  Sender: FDA-Public Use
  Company Number: None

PATIENT
  Age: 62 Year
  Sex: Female

DRUGS (1)
  1. GLATIRAMER ACETATE [Suspect]
     Active Substance: GLATIRAMER ACETATE
     Indication: Multiple sclerosis
     Dosage: 1 DOSAGE FORM, 3XW
     Route: 058
     Dates: start: 20190626, end: 20220315

REACTIONS (1)
  - Lipodystrophy acquired [Recovering/Resolving]

NARRATIVE: CASE EVENT DATE: 20211022
